FAERS Safety Report 4353994-7 (Version None)
Quarter: 2004Q2

REPORT INFORMATION
  Report Type: 
  Country: None (occurrence: None)
  Receive Date: 20040506
  Receipt Date: 20031014
  Transmission Date: 20050107
  Serious: No
  Sender: FDA-Public Use
  Company Number: US-GLAXOSMITHKLINE-A0503789A

PATIENT
  Age: 64 Year
  Sex: Female
  Weight: 97.7 kg

DRUGS (4)
  1. AVANDAMET [Suspect]
     Route: 048
     Dates: start: 20040101
  2. PLAVIX [Concomitant]
  3. AVANDIA [Concomitant]
     Route: 048
     Dates: end: 20030417
  4. LASIX [Concomitant]
     Indication: FLUID RETENTION

REACTIONS (1)
  - NAUSEA [None]
